FAERS Safety Report 5074546-X (Version None)
Quarter: 2006Q3

REPORT INFORMATION
  Report Type: 
  Country: None (occurrence: None)
  Receive Date: 20060803
  Receipt Date: 20060723
  Transmission Date: 20061208
  Serious: Yes (Other)
  Sender: FDA-Public Use
  Company Number: 2006090458

PATIENT
  Age: 77 Year
  Sex: Male
  Weight: 90.2658 kg

DRUGS (4)
  1. NORVASC [Suspect]
     Indication: BLOOD PRESSURE
     Dosage: 5 MG (5 MG, FREQUENCY: QD), ORAL
     Route: 048
     Dates: start: 20060721
  2. NEXIUM [Suspect]
     Indication: DRUG USE FOR UNKNOWN INDICATION
     Dates: end: 20060720
  3. TOPROL-XL [Concomitant]
  4. COUMADIN [Concomitant]

REACTIONS (14)
  - ABDOMINAL PAIN [None]
  - BLOOD PRESSURE INCREASED [None]
  - COUGH [None]
  - DRY MOUTH [None]
  - EPISTAXIS [None]
  - FATIGUE [None]
  - GINGIVAL SWELLING [None]
  - HAEMOPTYSIS [None]
  - MUSCLE SPASMS [None]
  - OEDEMA [None]
  - OEDEMA MOUTH [None]
  - OESOPHAGITIS [None]
  - PRODUCTIVE COUGH [None]
  - PRURITUS [None]
